FAERS Safety Report 20283823 (Version 8)
Quarter: 2022Q2

REPORT INFORMATION
  Report Type: Report from Study
  Country: PL (occurrence: PL)
  Receive Date: 20220103
  Receipt Date: 20220525
  Transmission Date: 20220721
  Serious: Yes (Hospitalization)
  Sender: FDA-Public Use
  Company Number: PL-KARYOPHARM THERAPEUTICS, INC.-2021KPT001656

PATIENT
  Age: 77 Year
  Sex: Male
  Weight: 72 kg

DRUGS (25)
  1. SELINEXOR [Suspect]
     Active Substance: SELINEXOR
     Indication: Diffuse large B-cell lymphoma
     Dosage: 60 MG, DAYS 1 AND 8 OF A 21-DAY CYCLE DURING COMBINATION THERAPY
     Route: 048
     Dates: start: 20211217, end: 20211224
  2. RITUXIMAB [Suspect]
     Active Substance: RITUXIMAB
     Indication: Diffuse large B-cell lymphoma
     Dosage: 375 MG/M2, 1X/3 WEEKS DAY 1 OF A 21-DAY CYCLE
     Route: 042
     Dates: start: 20211217, end: 20211224
  3. GEMCITABINE [Suspect]
     Active Substance: GEMCITABINE
     Indication: Diffuse large B-cell lymphoma
     Dosage: 1000 MG/M2, DAY 1 AND 8 OF A 21-DAY CYCLE
     Route: 042
     Dates: start: 20211217, end: 20211224
  4. DEXAMETHASONE [Suspect]
     Active Substance: DEXAMETHASONE
     Indication: Diffuse large B-cell lymphoma
     Dosage: 10 MG. DAYS 1, 2, 3, AND 4 OF A 21-DAY CYCLE
     Route: 048
     Dates: start: 20211217, end: 20211224
  5. CISPLATIN [Suspect]
     Active Substance: CISPLATIN
     Indication: Diffuse large B-cell lymphoma
     Dosage: 75 MG/M2, 1X/3 WEEKS DAY 1 OF A 21-DAY CYCLE
     Route: 042
     Dates: start: 20211217, end: 20211224
  6. ONDANSETRON [Concomitant]
     Active Substance: ONDANSETRON
     Indication: Prophylaxis
     Dosage: 8 MG, TID
     Route: 048
     Dates: start: 20211217, end: 20211218
  7. EMEND [Concomitant]
     Active Substance: APREPITANT
     Indication: Prophylaxis
     Dosage: 125 MG, SINGLE
     Route: 048
     Dates: start: 20211217, end: 20211218
  8. EMEND [Concomitant]
     Active Substance: APREPITANT
     Dosage: 80 MG, BID
     Route: 048
     Dates: start: 20211217, end: 20211218
  9. EMEND [Concomitant]
     Active Substance: APREPITANT
     Dosage: 80 MG, QD
     Route: 048
     Dates: start: 20211218, end: 20211219
  10. PREDNISONE [Concomitant]
     Active Substance: PREDNISONE
     Indication: Diffuse large B-cell lymphoma
     Dosage: 10 MG, QD
     Route: 048
     Dates: start: 20211221
  11. ALLOPURINOL [Concomitant]
     Active Substance: ALLOPURINOL
     Indication: Prophylaxis
     Dosage: 100 MG, QD
     Route: 048
     Dates: start: 20210822, end: 20211218
  12. ALLOPURINOL [Concomitant]
     Active Substance: ALLOPURINOL
     Dosage: 300 MG, QD
     Route: 048
     Dates: start: 20211219
  13. PROSCAR [Concomitant]
     Active Substance: FINASTERIDE
     Indication: Benign prostatic hyperplasia
     Dosage: 5 MG, QD
     Route: 048
     Dates: start: 2021
  14. PROLEX [Concomitant]
     Indication: Depression
     Dosage: 10 MG, QD
     Route: 048
     Dates: start: 2021
  15. METHIMAZOLE [Concomitant]
     Active Substance: METHIMAZOLE
     Indication: Hyperthyroidism
     Dosage: 5 MG, QD
     Route: 048
     Dates: start: 2021
  16. ENTEKAVIR SANDOZ [Concomitant]
     Indication: Antiviral prophylaxis
     Dosage: 0.5 MG, QD
     Route: 048
     Dates: start: 20210902
  17. ACYCLOVIR [Concomitant]
     Active Substance: ACYCLOVIR
     Indication: Antiviral prophylaxis
     Dosage: 400 MG, BID
     Route: 048
     Dates: start: 20210812
  18. TRAMADOL [Concomitant]
     Active Substance: TRAMADOL
     Indication: Lymph node pain
     Dosage: 50 MG, BID
     Route: 048
     Dates: start: 20211215
  19. SODIUM CHLORIDE [Concomitant]
     Active Substance: SODIUM CHLORIDE
     Indication: Prophylaxis
     Dosage: 1000 ML, SINGLE
     Route: 042
     Dates: start: 20211217, end: 20211217
  20. MAGNESIUM SULFATE [Concomitant]
     Active Substance: MAGNESIUM SULFATE
     Indication: Prophylaxis
     Dosage: 2 G, SINGLE
     Route: 042
     Dates: start: 20211217, end: 20211217
  21. POTASSIUM CHLORIDE [Concomitant]
     Active Substance: POTASSIUM CHLORIDE
     Indication: Prophylaxis
     Dosage: 1.5 G, SINGLE
     Route: 042
     Dates: start: 20211217, end: 20211217
  22. MANNITOL [Concomitant]
     Active Substance: MANNITOL
     Indication: Prophylaxis
     Dosage: 250 ML, SINGLE
     Route: 042
     Dates: start: 20211217, end: 20211217
  23. CORHYDRON [HYDROCORTISONE] [Concomitant]
     Indication: Prophylaxis
     Dosage: 100 MG, SINGLE
     Route: 042
     Dates: start: 20211217, end: 20211217
  24. CLEMASTINE [Concomitant]
     Active Substance: CLEMASTINE
     Indication: Prophylaxis
     Dosage: 1 MG, SINGLE
     Route: 042
     Dates: start: 20211217, end: 20211217
  25. ENOXAPARIN SODIUM [Concomitant]
     Active Substance: ENOXAPARIN SODIUM
     Indication: Venous thrombosis
     Dosage: 60 MG, QD
     Route: 058
     Dates: start: 20211219

REACTIONS (4)
  - Dehydration [Recovered/Resolved]
  - Fatigue [Not Recovered/Not Resolved]
  - Thrombocytopenia [Recovered/Resolved]
  - Infection [Recovered/Resolved]

NARRATIVE: CASE EVENT DATE: 20211224
